FAERS Safety Report 12780290 (Version 1)
Quarter: 2016Q3

REPORT INFORMATION
  Report Type: Spontaneous
  Country: US (occurrence: US)
  Receive Date: 20160923
  Receipt Date: 20160923
  Transmission Date: 20161109
  Serious: Yes (Disabling)
  Sender: FDA-Public Use
  Company Number: None

PATIENT
  Age: 67 Year
  Sex: Female
  Weight: 60.3 kg

DRUGS (3)
  1. MAGNESIUM [Concomitant]
     Active Substance: MAGNESIUM
  2. ZYRTEC [Concomitant]
     Active Substance: CETIRIZINE HYDROCHLORIDE
  3. CIPROFLOXACIN HCL 500MG TAB [Suspect]
     Active Substance: CIPROFLOXACIN
     Indication: URINARY TRACT INFECTION
     Route: 048
     Dates: start: 20160916, end: 20160918

REACTIONS (6)
  - Muscle spasms [None]
  - Tendon disorder [None]
  - Muscle tightness [None]
  - Anxiety [None]
  - Joint swelling [None]
  - Sleep disorder [None]

NARRATIVE: CASE EVENT DATE: 20160917
